FAERS Safety Report 17463230 (Version 1)
Quarter: 2020Q1

REPORT INFORMATION
  Report Type: Spontaneous
  Country: US (occurrence: US)
  Receive Date: 20200226
  Receipt Date: 20200226
  Transmission Date: 20200409
  Serious: Yes (Hospitalization, Other)
  Sender: FDA-Public Use
  Company Number: US-HIKMA PHARMACEUTICALS USA INC.-US-H14001-20-50637

PATIENT
  Age: 66 Year
  Sex: Female

DRUGS (4)
  1. ALPRAZOLAM. [Suspect]
     Active Substance: ALPRAZOLAM
     Indication: ANXIETY
     Route: 065
  2. BUPROPION. [Interacting]
     Active Substance: BUPROPION
     Indication: SMOKING CESSATION THERAPY
     Dosage: XL (EXTENDED-RELEASE)
     Route: 065
  3. LORAZEPAM. [Concomitant]
     Active Substance: LORAZEPAM
     Indication: PRODUCT USED FOR UNKNOWN INDICATION
     Route: 042
  4. LEVOTHYROXINE. [Concomitant]
     Active Substance: LEVOTHYROXINE
     Indication: HYPOTHYROIDISM
     Dosage: 137-150 MG ALTERNATING DAILY
     Route: 065

REACTIONS (4)
  - Seizure [Recovering/Resolving]
  - Drug interaction [Recovering/Resolving]
  - Convulsive threshold lowered [Recovering/Resolving]
  - Withdrawal syndrome [Recovering/Resolving]
